FAERS Safety Report 10594276 (Version 2)
Quarter: 2014Q4

REPORT INFORMATION
  Report Type: Spontaneous
  Country: US (occurrence: US)
  Receive Date: 20141119
  Receipt Date: 20141212
  Transmission Date: 20150529
  Serious: Yes (Death, Other)
  Sender: FDA-Public Use
  Company Number: US-BAXTER-2014BAX068199

PATIENT
  Age: 77 Year
  Sex: Female

DRUGS (5)
  1. PRISMASOL BGK2/3.5 [Suspect]
     Active Substance: ANHYDROUS DEXTROSE\CALCIUM CHLORIDE\LACTIC ACID\MAGNESIUM CHLORIDE\POTASSIUM CHLORIDE\SODIUM BICARBONATE\SODIUM CHLORIDE
     Indication: RENAL FAILURE
     Route: 010
  2. PRISMASOL BGK2/3.5 [Suspect]
     Active Substance: ANHYDROUS DEXTROSE\CALCIUM CHLORIDE\LACTIC ACID\MAGNESIUM CHLORIDE\POTASSIUM CHLORIDE\SODIUM BICARBONATE\SODIUM CHLORIDE
     Indication: ACIDOSIS
  3. HEPARIN [Suspect]
     Active Substance: HEPARIN SODIUM
     Indication: HAEMODIALYSIS
     Route: 010
  4. PRISMASOL BGK2/3.5 [Suspect]
     Active Substance: ANHYDROUS DEXTROSE\CALCIUM CHLORIDE\LACTIC ACID\MAGNESIUM CHLORIDE\POTASSIUM CHLORIDE\SODIUM BICARBONATE\SODIUM CHLORIDE
     Indication: CONTINUOUS HAEMODIAFILTRATION
  5. PRISMASOL BGK2/3.5 [Suspect]
     Active Substance: ANHYDROUS DEXTROSE\CALCIUM CHLORIDE\LACTIC ACID\MAGNESIUM CHLORIDE\POTASSIUM CHLORIDE\SODIUM BICARBONATE\SODIUM CHLORIDE
     Indication: RENAL REPLACEMENT THERAPY

REACTIONS (4)
  - Haemorrhage [Unknown]
  - Cardiac arrest [Unknown]
  - Death [Fatal]
  - Pulseless electrical activity [Fatal]

NARRATIVE: CASE EVENT DATE: 20141110
